FAERS Safety Report 7087009-7 (Version None)
Quarter: 2010Q4

REPORT INFORMATION
  Report Type: 
  Country: None (occurrence: None)
  Receive Date: 20101106
  Receipt Date: 20101021
  Transmission Date: 20110411
  Serious: No
  Sender: FDA-Public Use
  Company Number: US-WYE-H17502310

PATIENT
  Sex: Male
  Weight: 49.49 kg

DRUGS (11)
  1. RAPAMUNE [Suspect]
     Indication: HEART TRANSPLANT
     Route: 048
     Dates: start: 20100805, end: 20100807
  2. RAPAMUNE [Suspect]
     Dosage: UNSPECIFIED
     Route: 048
     Dates: start: 20100818, end: 20100915
  3. BACTRIM [Concomitant]
     Indication: ANTIFUNGAL PROPHYLAXIS
     Dosage: 1 TABLET MWF
     Dates: start: 20100118
  4. LISINOPRIL [Concomitant]
     Indication: BLOOD PRESSURE
     Dates: start: 20100118
  5. OMEPRAZOLE [Concomitant]
     Route: 048
     Dates: start: 20100118
  6. SIMVASTATIN [Concomitant]
     Dates: start: 20100118
  7. MAGNESIUM [Concomitant]
  8. SLOW-MAG [Concomitant]
  9. ACETYLSALICYLIC ACID [Concomitant]
     Dates: start: 20100118
  10. MYCOPHENOLATE MOFETIL [Concomitant]
     Indication: IMMUNOSUPPRESSANT DRUG THERAPY
     Dates: start: 20100118
  11. LEVOTHYROXINE [Concomitant]
     Indication: THYROID DISORDER
     Dates: start: 20100118

REACTIONS (3)
  - ACNE [None]
  - LIP SWELLING [None]
  - ULCER [None]
